FAERS Safety Report 17919634 (Version 1)
Quarter: 2020Q2

REPORT INFORMATION
  Report Type: Spontaneous
  Country: DE (occurrence: DE)
  Receive Date: 20200619
  Receipt Date: 20200619
  Transmission Date: 20200714
  Serious: Yes (Hospitalization)
  Sender: FDA-Public Use
  Company Number: NVSC2020DE171422

PATIENT
  Age: 67 Year
  Sex: Female

DRUGS (3)
  1. VALSARTAN. [Suspect]
     Active Substance: VALSARTAN
     Indication: PRODUCT USED FOR UNKNOWN INDICATION
     Dosage: UNK
     Route: 048
     Dates: start: 20120703
  2. VALSARTAN RATIOPHARM COMP [Suspect]
     Active Substance: HYDROCHLOROTHIAZIDE\VALSARTAN
     Dosage: UNK UNK, QD (1 DF CONTAINS 80 MG VALSARTAN AND 12.5 MG HYDROCHLOROTHIAZIDE, DAILY INTAKE)
     Route: 048
     Dates: start: 201807
  3. VALSARTAN RATIOPHARM COMP [Suspect]
     Active Substance: HYDROCHLOROTHIAZIDE\VALSARTAN
     Indication: PRODUCT USED FOR UNKNOWN INDICATION
     Dosage: UNK UNK, QD (1 DF CONTAINS 80 MG VALSARTAN AND 12.5 MG HYDROCHLOROTHIAZIDE, DAILY INTAKE)
     Route: 048
     Dates: start: 20130411

REACTIONS (2)
  - Product impurity [Unknown]
  - Hepatic cancer [Unknown]

NARRATIVE: CASE EVENT DATE: 2016
